FAERS Safety Report 21707037 (Version 6)
Quarter: 2023Q2

REPORT INFORMATION
  Report Type: Report from Study
  Country: US (occurrence: US)
  Receive Date: 20221209
  Receipt Date: 20230602
  Transmission Date: 20230722
  Serious: Yes (Hospitalization)
  Sender: FDA-Public Use
  Company Number: US-JNJFOC-20221205822

PATIENT
  Age: 71 Year
  Sex: Male
  Weight: 144.4 kg

DRUGS (25)
  1. TECLISTAMAB [Suspect]
     Active Substance: TECLISTAMAB
     Indication: Plasma cell myeloma refractory
     Route: 058
     Dates: start: 20221130, end: 20221130
  2. DARATUMUMAB [Suspect]
     Active Substance: DARATUMUMAB
     Indication: Plasma cell myeloma refractory
     Route: 058
     Dates: start: 20221129, end: 20221129
  3. ALLOPURINOL [Concomitant]
     Active Substance: ALLOPURINOL
     Indication: Arthritis
     Dosage: CUMULATIVE DOSE 300
     Route: 048
     Dates: start: 19900101
  4. RAMIPRIL [Concomitant]
     Active Substance: RAMIPRIL
     Indication: Hypertension
     Dosage: CUMULATIVE DOSE 5
     Route: 048
     Dates: start: 20000101
  5. AMLODIPINE BESYLATE [Concomitant]
     Active Substance: AMLODIPINE BESYLATE
     Indication: Hypertension
     Dosage: CUMULATIVE 5
     Route: 048
     Dates: start: 20000101
  6. BUMETANIDE [Concomitant]
     Active Substance: BUMETANIDE
     Indication: Hypertension
     Dosage: CUMULATIVE DOSE 1
     Route: 048
     Dates: start: 20000101
  7. VITAMINS [Concomitant]
     Active Substance: VITAMINS
     Indication: Vitamin supplementation
     Dosage: CUMULATIVE DOSE 1
     Route: 048
     Dates: start: 20050101
  8. OMEGA-3-ACID ETHYL ESTERS [Concomitant]
     Active Substance: OMEGA-3-ACID ETHYL ESTERS
     Indication: Supplementation therapy
     Dosage: CUMULATIVE DOSAGE 1
     Route: 048
     Dates: start: 20100101
  9. OMEGA-3-ACID ETHYL ESTERS [Concomitant]
     Active Substance: OMEGA-3-ACID ETHYL ESTERS
     Indication: Blood cholesterol
  10. ASPIRIN [Concomitant]
     Active Substance: ASPIRIN
     Indication: Cardiovascular event prophylaxis
     Dosage: CUMULATIVE DOSAGE 81
     Route: 048
     Dates: start: 20100101
  11. CETIRIZINE [Concomitant]
     Active Substance: CETIRIZINE HYDROCHLORIDE
     Indication: Rhinitis allergic
     Dosage: CUMULATIVE DOSAGE 10
     Route: 048
     Dates: start: 20100101
  12. PRAVASTATIN [Concomitant]
     Active Substance: PRAVASTATIN
     Indication: Hyperlipidaemia
     Dosage: CUMULATIVE DOSAGE 40
     Route: 048
     Dates: start: 20100101
  13. KLOR-CON M20 [Concomitant]
     Active Substance: POTASSIUM CHLORIDE
     Indication: Hypokalaemia
     Dosage: CUMULATIVE DOSAGE 20
     Route: 048
     Dates: start: 20130101
  14. KLOR-CON M20 [Concomitant]
     Active Substance: POTASSIUM CHLORIDE
     Route: 048
     Dates: start: 20190808
  15. MELOXICAM [Concomitant]
     Active Substance: MELOXICAM
     Indication: Osteoarthritis
     Dosage: CUMULATIVE DOSAGE 7.5
     Route: 048
     Dates: start: 20130101
  16. VALACYCLOVIR HYDROCHLORIDE [Concomitant]
     Active Substance: VALACYCLOVIR HYDROCHLORIDE
     Indication: Antiviral prophylaxis
     Route: 048
     Dates: start: 20130101
  17. ERGOCALCIFEROL [Concomitant]
     Active Substance: ERGOCALCIFEROL
     Indication: Memory impairment
     Dosage: CUMULATIVE DOSAGE 1250
     Route: 048
     Dates: start: 20170101
  18. FERROUS SULFATE [Concomitant]
     Active Substance: FERROUS SULFATE
     Indication: Vitamin supplementation
     Dosage: CUMULATIVE DOSAGE 325
     Route: 048
     Dates: start: 20170101
  19. TAMSULOSIN [Concomitant]
     Active Substance: TAMSULOSIN
     Indication: Urinary retention
     Dosage: CUMULATIVE DOSAGE 0.4
     Route: 048
     Dates: start: 20170910
  20. FLUTICASONE [Concomitant]
     Active Substance: FLUTICASONE
     Indication: Rhinitis allergic
     Dosage: CUMULATIVE DOSAGE 50
     Route: 055
     Dates: start: 20170921
  21. METOPROLOL SUCCINATE [Concomitant]
     Active Substance: METOPROLOL SUCCINATE
     Indication: Hypertension
     Dosage: CUMULATIVE DOSAGE 200
     Route: 048
     Dates: start: 20180103
  22. MOMETASONE FUROATE [Concomitant]
     Active Substance: MOMETASONE FUROATE
     Indication: Rhinitis allergic
     Dosage: CUMULATIVE DOSAGE 50
     Route: 045
     Dates: start: 20180922
  23. ALBUTEROL SULFATE [Concomitant]
     Active Substance: ALBUTEROL SULFATE
     Indication: Chronic obstructive pulmonary disease
     Dosage: CUMULATIVE DOSAGE 90
     Route: 055
     Dates: start: 20181220
  24. MEMANTINE [Concomitant]
     Active Substance: MEMANTINE
     Indication: Memory impairment
     Dosage: CUMULATIVE DOSAGE 5
     Route: 045
     Dates: start: 20220916
  25. IMODIUM [Concomitant]
     Active Substance: LOPERAMIDE HYDROCHLORIDE
     Indication: Diarrhoea
     Route: 048
     Dates: start: 20221214

REACTIONS (2)
  - Cytokine release syndrome [Recovered/Resolved]
  - Sepsis [Recovered/Resolved]

NARRATIVE: CASE EVENT DATE: 20221201
